FAERS Safety Report 6266313-6 (Version None)
Quarter: 2009Q3

REPORT INFORMATION
  Report Type: 
  Country: None (occurrence: None)
  Receive Date: 20090713
  Receipt Date: 20090702
  Transmission Date: 20100115
  Serious: Yes (Other)
  Sender: FDA-Public Use
  Company Number: PHHY2009US27651

PATIENT
  Age: 54 Year
  Sex: Female

DRUGS (1)
  1. ELIDEL [Suspect]

REACTIONS (1)
  - MYCOSIS FUNGOIDES STAGE I [None]
